FAERS Safety Report 13885021 (Version 1)
Quarter: 2017Q3

REPORT INFORMATION
  Report Type: Spontaneous
  Country: JP (occurrence: JP)
  Receive Date: 20170821
  Receipt Date: 20170821
  Transmission Date: 20171127
  Serious: Yes (Hospitalization, Other)
  Sender: FDA-Public Use
  Company Number: JP-PFIZER INC-2017353248

PATIENT
  Age: 68 Year
  Sex: Male

DRUGS (2)
  1. SUTENT [Suspect]
     Active Substance: SUNITINIB MALATE
     Indication: METASTASES TO LUNG
     Dosage: 50 MG, 1X/DAY
     Dates: start: 20170110, end: 20170228
  2. SUTENT [Suspect]
     Active Substance: SUNITINIB MALATE
     Indication: RENAL CANCER
     Dosage: 50 MG, 1X/DAY WITH CYCLE OF TWO-WEEK ADMINISTRATION FOLLOWED BY ONE WEEK REST
     Dates: start: 20160927, end: 20161102

REACTIONS (10)
  - Epistaxis [Recovered/Resolved]
  - Duodenal ulcer [Unknown]
  - Red blood cell count decreased [Not Recovered/Not Resolved]
  - Haemoglobin decreased [Not Recovered/Not Resolved]
  - Mallory-Weiss syndrome [Unknown]
  - Gastrooesophageal reflux disease [Unknown]
  - Dehydration [Recovered/Resolved]
  - Decreased appetite [Recovered/Resolved]
  - Nausea [Recovered/Resolved]
  - Vomiting [Recovered/Resolved]

NARRATIVE: CASE EVENT DATE: 20161101
